FAERS Safety Report 15657302 (Version 2)
Quarter: 2019Q2

REPORT INFORMATION
  Report Type: Spontaneous
  Country: US (occurrence: US)
  Receive Date: 20181126
  Receipt Date: 20190521
  Transmission Date: 20190711
  Serious: Yes (Other)
  Sender: FDA-Public Use
  Company Number: US-SAKK-2018SA178133AA

PATIENT
  Age: 36 Year
  Sex: Female

DRUGS (12)
  1. ALLEGRA [Concomitant]
     Active Substance: FEXOFENADINE HYDROCHLORIDE
     Indication: HYPERSENSITIVITY
  2. DUPIXENT [Suspect]
     Active Substance: DUPILUMAB
     Dosage: 1 INJECT 2 SYRINGES (600 MG) SUBCUTANEOUSLY ON DAY 1
     Route: 058
  3. VITAMIN C [Concomitant]
     Active Substance: ASCORBIC ACID
  4. DOXYCYCLIN [DOXYCYCLINE HYCLATE] [Concomitant]
  5. HYDROXYZINE HYDROCHLORIDE. [Concomitant]
     Active Substance: HYDROXYZINE HYDROCHLORIDE
  6. VITAMIN D NOS [Concomitant]
     Active Substance: VITAMIN D NOS
  7. PREDNISONE. [Concomitant]
     Active Substance: PREDNISONE
  8. DIPHENHYDRAMINE. [Concomitant]
     Active Substance: DIPHENHYDRAMINE
  9. ZINC. [Concomitant]
     Active Substance: ZINC
  10. FAMOTIDIN [Concomitant]
     Active Substance: FAMOTIDINE
  11. PROBIOTIC [BIFIDOBACTERIUM BIFIDUM;BIFIDOBACTERIUM LACTIS;BIFIDOBACTER [Concomitant]
  12. SINGULAIR [Concomitant]
     Active Substance: MONTELUKAST SODIUM

REACTIONS (1)
  - Ocular hyperaemia [Unknown]
